FAERS Safety Report 7472309-9 (Version None)
Quarter: 2011Q2

REPORT INFORMATION
  Report Type: 
  Country: None (occurrence: None)
  Receive Date: 20110502
  Receipt Date: 20110426
  Transmission Date: 20111010
  Serious: Yes (Other)
  Sender: FDA-Public Use
  Company Number: 878401

PATIENT
  Age: 73 Year
  Sex: Male

DRUGS (2)
  1. EPIRUBICIN HYDROCHLORIDE [Suspect]
     Indication: OESOPHAGEAL ADENOCARCINOMA
     Dosage: 50 TO 70 ML, INTRAVENOUS DRIP
     Route: 041
  2. OXALIPLATIN [Concomitant]

REACTIONS (7)
  - INJECTION SITE INFLAMMATION [None]
  - INJECTION SITE NECROSIS [None]
  - INJECTION SITE PAIN [None]
  - INFUSION SITE SWELLING [None]
  - OFF LABEL USE [None]
  - INJECTION SITE EXTRAVASATION [None]
  - INJECTION SITE ERYTHEMA [None]
